FAERS Safety Report 4908560-9 (Version None)
Quarter: 2006Q1

REPORT INFORMATION
  Report Type: 
  Country: None (occurrence: None)
  Receive Date: 20060210
  Receipt Date: 20050826
  Transmission Date: 20060701
  Serious: No
  Sender: FDA-Public Use
  Company Number: US-GLAXOSMITHKLINE-A0571970A

PATIENT
  Age: 53 Year
  Sex: Female

DRUGS (2)
  1. PAXIL CR [Suspect]
     Indication: MENOPAUSE
     Dosage: 12.5MG PER DAY
     Route: 048
     Dates: start: 20050825
  2. NO CONCURRENT MEDICATION [Concomitant]

REACTIONS (4)
  - FEELING ABNORMAL [None]
  - PARAESTHESIA [None]
  - SKIN TIGHTNESS [None]
  - SOMNOLENCE [None]
